FAERS Safety Report 17420624 (Version 1)
Quarter: 2020Q1

REPORT INFORMATION
  Report Type: Report from Study
  Country: GB (occurrence: GB)
  Receive Date: 20200214
  Receipt Date: 20200214
  Transmission Date: 20200409
  Serious: Yes (Hospitalization)
  Sender: FDA-Public Use
  Company Number: GB-JNJFOC-20200208546

PATIENT
  Age: 54 Year
  Sex: Female
  Weight: 56.4 kg

DRUGS (14)
  1. USTEKINUMAB [Suspect]
     Active Substance: USTEKINUMAB
     Indication: PSORIASIS
     Route: 058
     Dates: start: 20140722
  2. VENLAFAXINE [Concomitant]
     Active Substance: VENLAFAXINE HYDROCHLORIDE
     Dates: start: 20030101
  3. BISACODYL. [Concomitant]
     Active Substance: BISACODYL
     Dates: start: 20030101
  4. NORTRIPTYLINE [Concomitant]
     Active Substance: NORTRIPTYLINE
     Dates: start: 20030101
  5. FUROSEMIDE. [Concomitant]
     Active Substance: FUROSEMIDE
     Dates: start: 20030101
  6. BACLOFEN. [Concomitant]
     Active Substance: BACLOFEN
     Dates: start: 20030101
  7. PREGABALIN. [Concomitant]
     Active Substance: PREGABALIN
     Dates: start: 20170612
  8. LAMOTRIGINE. [Concomitant]
     Active Substance: LAMOTRIGINE
     Dates: start: 20020101
  9. OMEPRAZOLE. [Concomitant]
     Active Substance: OMEPRAZOLE
     Dates: start: 20030101
  10. DICLOFENAC [Concomitant]
     Active Substance: DICLOFENAC
     Dates: start: 20170612
  11. MORPHINE [Concomitant]
     Active Substance: MORPHINE
     Dates: start: 20020101
  12. GABAPENTIN. [Concomitant]
     Active Substance: GABAPENTIN
     Dates: start: 20030101
  13. SIMVASTATIN. [Concomitant]
     Active Substance: SIMVASTATIN
     Dates: start: 20030101
  14. FENTANYL. [Concomitant]
     Active Substance: FENTANYL
     Dates: start: 20170613

REACTIONS (2)
  - Escherichia urinary tract infection [Recovered/Resolved]
  - Intestinal pseudo-obstruction [Recovered/Resolved]

NARRATIVE: CASE EVENT DATE: 20190513
